FAERS Safety Report 14269098 (Version 2)
Quarter: 2018Q2

REPORT INFORMATION
  Report Type: Spontaneous
  Country: US (occurrence: US)
  Receive Date: 20171211
  Receipt Date: 20180628
  Transmission Date: 20180711
  Serious: Yes (Other)
  Sender: FDA-Public Use
  Company Number: US-OTSUKA-2017_020384

PATIENT
  Sex: Male

DRUGS (1)
  1. ABILIFY [Suspect]
     Active Substance: ARIPIPRAZOLE
     Indication: MAJOR DEPRESSION
     Dosage: 5-10 MG, QD
     Route: 065
     Dates: start: 2012, end: 2015

REACTIONS (13)
  - Suicide attempt [Recovered/Resolved]
  - Brain injury [Unknown]
  - Trichotillomania [Recovered/Resolved]
  - Gambling disorder [Recovered/Resolved]
  - Compulsive sexual behaviour [Recovered/Resolved]
  - Sexually transmitted disease [Unknown]
  - Divorced [Unknown]
  - Suicidal ideation [Recovered/Resolved]
  - Injury [Unknown]
  - Economic problem [Unknown]
  - Compulsive shopping [Recovered/Resolved]
  - Dermatillomania [Recovered/Resolved]
  - Loss of employment [Unknown]

NARRATIVE: CASE EVENT DATE: 2014
